FAERS Safety Report 21450428 (Version 1)
Quarter: 2022Q4

REPORT INFORMATION
  Report Type: Report from Study
  Country: US (occurrence: US)
  Receive Date: 20221013
  Receipt Date: 20221013
  Transmission Date: 20230113
  Serious: Yes (Other)
  Sender: FDA-Public Use
  Company Number: US-ABBVIE-4152139

PATIENT
  Sex: Male

DRUGS (1)
  1. HUMIRA [Suspect]
     Active Substance: ADALIMUMAB
     Indication: Crohn^s disease
     Dosage: 40MG/0.4ML ?CITRATE FREE
     Route: 058

REACTIONS (3)
  - Adenoidal disorder [Recovering/Resolving]
  - Respiratory tract congestion [Recovering/Resolving]
  - Snoring [Recovering/Resolving]
